FAERS Safety Report 22541559 (Version 1)
Quarter: 2023Q2

REPORT INFORMATION
  Report Type: Spontaneous
  Country: US (occurrence: None)
  Receive Date: 20230608
  Receipt Date: 20230608
  Transmission Date: 20230722
  Serious: No
  Sender: FDA-Public Use
  Company Number: None

PATIENT
  Age: 32 Year
  Sex: Male
  Weight: 65.25 kg

DRUGS (2)
  1. INJECTAFER [Suspect]
     Active Substance: FERRIC CARBOXYMALTOSE
     Indication: Iron deficiency
     Route: 041
     Dates: start: 20230608, end: 20230608
  2. INJECTAFER [Concomitant]
     Active Substance: FERRIC CARBOXYMALTOSE
     Dates: start: 20230608, end: 20230608

REACTIONS (5)
  - Flushing [None]
  - Dyspepsia [None]
  - Abdominal pain upper [None]
  - Infusion related reaction [None]
  - Somnolence [None]

NARRATIVE: CASE EVENT DATE: 20230608
